FAERS Safety Report 8878856 (Version 6)
Quarter: 2013Q4

REPORT INFORMATION
  Report Type: Report from Study
  Country: FR (occurrence: FR)
  Receive Date: 20121026
  Receipt Date: 20131018
  Transmission Date: 20140711
  Serious: Yes (Hospitalization, Disabling, Other)
  Sender: FDA-Public Use
  Company Number: FR-ROCHE-1146363

PATIENT
  Age: 60 Year
  Sex: Male
  Weight: 67 kg

DRUGS (10)
  1. TOCILIZUMAB [Suspect]
     Indication: RHEUMATOID ARTHRITIS
     Route: 042
     Dates: start: 20120601, end: 20121011
  2. METHOTREXATE [Concomitant]
     Indication: RHEUMATOID ARTHRITIS
     Route: 048
  3. ATENOLOL [Concomitant]
     Indication: HYPERTENSION
     Route: 048
  4. ACID. ACETYLSALICYLIC. [Concomitant]
     Indication: RHEUMATIC FEVER
     Route: 048
  5. CLONIDINE [Concomitant]
     Indication: HYPERTENSION
     Dosage: 0.15
     Route: 048
  6. CORTANCYL [Concomitant]
  7. ESOMEPRAZOLE [Concomitant]
  8. DIFFU K [Concomitant]
     Dosage: 2 TAB THRICE A DAY
     Route: 065
  9. CALCIDOSE VITAMINE D [Concomitant]
     Dosage: 500 MG 400 IU [INTERNATIONAL UNITS] 2 SACHETS IN THE MORNING
     Route: 065
  10. DOLIPRANE [Concomitant]
     Indication: HAEMATOMA
     Dosage: 2 TO 3 TABLETS PER DAY
     Route: 065

REACTIONS (1)
  - Acquired haemophilia [Recovered/Resolved]
